FAERS Safety Report 8823389 (Version 3)
Quarter: 2013Q3

REPORT INFORMATION
  Report Type: Spontaneous
  Country: US (occurrence: US)
  Receive Date: 20121003
  Receipt Date: 20130805
  Transmission Date: 20140515
  Serious: Yes (Hospitalization, Other)
  Sender: FDA-Public Use
  Company Number: US-GENZYME-FABR-1002773

PATIENT
  Age: 37 Year
  Sex: Female
  Weight: 61.8 kg

DRUGS (3)
  1. FABRAZYME [Suspect]
     Indication: FABRY^S DISEASE
     Dosage: 1.2 MG/KG, Q2W
     Route: 042
     Dates: start: 200504
  2. FABRAZYME [Suspect]
     Dosage: 70 MG, UNK
     Route: 042
     Dates: start: 200907, end: 201203
  3. FABRAZYME [Suspect]
     Dosage: 1.06 MG/KG, Q2W
     Route: 042
     Dates: start: 20120301

REACTIONS (1)
  - Oesophageal achalasia [Not Recovered/Not Resolved]
